FAERS Safety Report 4919410-9 (Version None)
Quarter: 2006Q1

REPORT INFORMATION
  Report Type: 
  Country: None (occurrence: None)
  Receive Date: 20060222
  Receipt Date: 20060120
  Transmission Date: 20060701
  Serious: Yes (Life-Threatening, Hospitalization)
  Sender: FDA-Public Use
  Company Number: JP-MERCK-0601USA02671

PATIENT
  Age: 95 Year
  Sex: Female

DRUGS (14)
  1. PL-GRANULES [Concomitant]
     Route: 048
     Dates: start: 20060114, end: 20060118
  2. PEPCID RPD [Suspect]
     Indication: GASTRITIS
     Route: 048
     Dates: start: 20051015, end: 20060118
  3. ASPIRIN [Concomitant]
     Route: 048
     Dates: start: 20040724
  4. BLOPRESS [Concomitant]
     Route: 048
     Dates: start: 20060107
  5. ATARAX [Concomitant]
     Route: 048
     Dates: start: 20040724, end: 20060118
  6. LENDORMIN [Concomitant]
     Route: 048
     Dates: start: 20040724, end: 20060118
  7. LORAZEPAM [Concomitant]
     Route: 048
     Dates: start: 20040724, end: 20060118
  8. AMOBAN [Concomitant]
     Route: 048
     Dates: start: 20040724, end: 20060118
  9. COLDRIN [Concomitant]
     Route: 048
     Dates: start: 20040724, end: 20060118
  10. KAKKON-TO [Concomitant]
     Route: 065
  11. FLOMOX [Concomitant]
     Route: 048
     Dates: start: 20060114, end: 20060118
  12. SODIUM PICOSULFATE [Concomitant]
     Route: 048
     Dates: start: 20000426, end: 20060118
  13. THYRADIN-S [Concomitant]
     Route: 048
     Dates: start: 20000426
  14. SENNA [Concomitant]
     Route: 048
     Dates: start: 20060107, end: 20060118

REACTIONS (10)
  - ALANINE AMINOTRANSFERASE INCREASED [None]
  - ASPARTATE AMINOTRANSFERASE INCREASED [None]
  - BLOOD LACTATE DEHYDROGENASE INCREASED [None]
  - CARDIAC ARREST [None]
  - HYPOKALAEMIA [None]
  - LONG QT SYNDROME [None]
  - RESPIRATORY ARREST [None]
  - SYNCOPE [None]
  - TORSADE DE POINTES [None]
  - VENTRICULAR TACHYCARDIA [None]
